FAERS Safety Report 15896859 (Version 1)
Quarter: 2019Q1

REPORT INFORMATION
  Report Type: Spontaneous
  Country: US (occurrence: US)
  Receive Date: 20190131
  Receipt Date: 20190131
  Transmission Date: 20190417
  Serious: No
  Sender: FDA-Public Use
  Company Number: US-DSJP-DSU-2017-147737

PATIENT

DRUGS (3)
  1. BENICAR HCT [Suspect]
     Active Substance: HYDROCHLOROTHIAZIDE\OLMESARTAN MEDOXOMIL
     Indication: HYPERTENSION
     Dosage: 20-12.5MG, QD
     Route: 048
     Dates: start: 20140403, end: 20140426
  2. BENICAR HCT [Suspect]
     Active Substance: HYDROCHLOROTHIAZIDE\OLMESARTAN MEDOXOMIL
     Dosage: 40-25MG, QD
     Route: 048
     Dates: start: 20140426
  3. BENICAR [Suspect]
     Active Substance: OLMESARTAN MEDOXOMIL
     Indication: PRODUCT USED FOR UNKNOWN INDICATION
     Dosage: UNK
     Dates: end: 2015

REACTIONS (5)
  - Gastrooesophageal reflux disease [Unknown]
  - Gastric polyps [Unknown]
  - Sprue-like enteropathy [Recovered/Resolved]
  - Haemorrhoids [Not Recovered/Not Resolved]
  - Abdominal hernia [Unknown]

NARRATIVE: CASE EVENT DATE: 20150413
